FAERS Safety Report 15305682 (Version 1)
Quarter: 2018Q3

REPORT INFORMATION
  Report Type: Report from Study
  Country: None (occurrence: ES)
  Receive Date: 20180822
  Receipt Date: 20180822
  Transmission Date: 20181010
  Serious: Yes (Hospitalization)
  Sender: FDA-Public Use
  Company Number: ES-ABBVIE-18K-144-2433816-00

PATIENT
  Age: 75 Year
  Sex: Male
  Weight: 68 kg

DRUGS (3)
  1. DUODOPA [Suspect]
     Active Substance: CARBIDOPA\LEVODOPA
     Indication: PARKINSON^S DISEASE
     Route: 050
     Dates: start: 20170125
  2. DUODOPA [Suspect]
     Active Substance: CARBIDOPA\LEVODOPA
     Dosage: CD: 0.6 ML/H?MD: 1 ML
     Route: 050
  3. DUODOPA [Suspect]
     Active Substance: CARBIDOPA\LEVODOPA
     Dosage: CONTINUOUS DOSE OF DUODOPA FROM 2.3 ML/H TO 1.4 ML/H.
     Route: 050

REACTIONS (5)
  - Tongue disorder [Not Recovered/Not Resolved]
  - Muscle spasms [Recovering/Resolving]
  - Hallucination [Recovered/Resolved]
  - Dyskinesia [Recovered/Resolved]
  - Urinary tract infection [Recovered/Resolved]

NARRATIVE: CASE EVENT DATE: 2018
